FAERS Safety Report 24053381 (Version 1)
Quarter: 2024Q3

REPORT INFORMATION
  Report Type: Spontaneous
  Country: ES (occurrence: ES)
  Receive Date: 20240705
  Receipt Date: 20240705
  Transmission Date: 20241016
  Serious: Yes (Other)
  Sender: JOHNSON AND JOHNSON
  Company Number: ES-JNJFOC-20240703988

PATIENT

DRUGS (2)
  1. REMICADE [Suspect]
     Active Substance: INFLIXIMAB
     Indication: Crohn^s disease
     Route: 041
  2. DARVADSTROCEL [Concomitant]
     Active Substance: DARVADSTROCEL
     Indication: Crohn^s disease
     Route: 065

REACTIONS (1)
  - Endometrial cancer [Unknown]
